FAERS Safety Report 9229576 (Version 1)
Quarter: 2013Q2

REPORT INFORMATION
  Report Type: Spontaneous
  Country: US (occurrence: US)
  Receive Date: 20130414
  Receipt Date: 20130414
  Transmission Date: 20140414
  Serious: Yes (Hospitalization)
  Sender: FDA-Public Use
  Company Number: US-B.I. PHARMACEUTICALS,INC./RIDGEFIELD-2013-BI-09571BP

PATIENT
  Age: 75 Year
  Sex: Male
  Weight: 132 kg

DRUGS (17)
  1. PRADAXA [Suspect]
     Indication: ATRIAL FIBRILLATION
     Dosage: 300 MG
     Route: 048
     Dates: start: 20121202, end: 20130322
  2. PRADAXA [Suspect]
     Dosage: 150 MG
     Route: 048
     Dates: start: 20130322
  3. SYNTHROID [Concomitant]
     Dosage: 150 MG
     Route: 048
  4. ALLOPURINOL [Concomitant]
     Indication: GOUT
     Dosage: 100 MG
     Route: 048
  5. FUROSEMIDE [Concomitant]
     Dosage: 40 MG
     Route: 048
  6. ZETIA [Concomitant]
     Dosage: 10 MG
     Route: 048
  7. HYDROCORTISONE [Concomitant]
     Dosage: 30 MG
     Route: 048
  8. SURFAK STOOL SOFTENER [Concomitant]
     Route: 048
  9. LACTULOSE SOL [Concomitant]
     Route: 048
  10. FINASTERIDE [Concomitant]
     Indication: URINARY INCONTINENCE
     Dosage: 5 MG
     Route: 048
  11. METOPROLOL [Concomitant]
     Route: 048
  12. FISH OIL [Concomitant]
     Dosage: 2400 MG
     Route: 048
  13. ANTARA [Concomitant]
     Dosage: 130 MG
     Route: 048
  14. WELLCHOL [Concomitant]
     Indication: BLOOD CHOLESTEROL INCREASED
     Dosage: 1250 MG
     Route: 048
  15. ASPIRIN [Concomitant]
     Dosage: 81 MG
     Route: 048
  16. CALCIUM [Concomitant]
     Dosage: 600 MG
     Route: 048
  17. XANAX [Concomitant]
     Route: 048

REACTIONS (6)
  - Cardiac failure congestive [Recovered/Resolved]
  - Oedema peripheral [Recovered/Resolved]
  - Dyspnoea [Recovered/Resolved]
  - Bronchitis [Not Recovered/Not Resolved]
  - Anxiety [Recovered/Resolved]
  - Insomnia [Recovered/Resolved]
